FAERS Safety Report 9187501 (Version 1)
Quarter: 2013Q1

REPORT INFORMATION
  Report Type: Spontaneous
  Country: NL (occurrence: NL)
  Receive Date: 20130325
  Receipt Date: 20130325
  Transmission Date: 20140127
  Serious: Yes (Hospitalization, Other)
  Sender: FDA-Public Use
  Company Number: NL-PFIZER INC-2013091422

PATIENT
  Age: 34 Year
  Sex: Female

DRUGS (3)
  1. AZITHROMYCIN [Suspect]
     Dosage: 500 MG, 1X/DAY
     Dates: start: 20130219
  2. VENTOLIN [Concomitant]
     Dosage: 200 UG, 3X/DAY
     Dates: start: 20130207
  3. DIANE - 35 ^SCHERING AG^ [Concomitant]
     Dosage: 1 DF, CYCLIC

REACTIONS (6)
  - Anaphylactic reaction [Unknown]
  - Dyspnoea [Unknown]
  - Abdominal discomfort [Unknown]
  - Syncope [Unknown]
  - Throat irritation [Unknown]
  - Diarrhoea [Unknown]
